FAERS Safety Report 5297262-8 (Version None)
Quarter: 2007Q2

REPORT INFORMATION
  Report Type: 
  Country: None (occurrence: None)
  Receive Date: 20070416
  Receipt Date: 20070405
  Transmission Date: 20071010
  Serious: Yes (Other)
  Sender: FDA-Public Use
  Company Number: US-JNJFOC-20070402040

PATIENT
  Sex: Male

DRUGS (15)
  1. FENTANYL TRANSDERMAL SYSTEM [Suspect]
     Route: 062
  2. FENTANYL TRANSDERMAL SYSTEM [Suspect]
     Indication: PAIN
     Route: 062
  3. LASIX [Concomitant]
     Indication: DIURETIC THERAPY
     Route: 048
  4. NAPROXEN [Concomitant]
     Indication: PAIN
     Route: 048
  5. METOPROLOL SUCCINATE [Concomitant]
     Route: 048
  6. VITAMIN CAP [Concomitant]
     Indication: NUTRITIONAL SUPPORT
     Route: 048
  7. PLAVIX [Concomitant]
     Indication: ANTICOAGULANT THERAPY
     Route: 048
  8. SOMA [Concomitant]
     Indication: PAIN IN EXTREMITY
     Route: 048
  9. NOVALOG [Concomitant]
     Indication: DIABETES MELLITUS
     Route: 058
  10. LANTUS [Concomitant]
     Indication: DIABETES MELLITUS
     Route: 058
  11. ECOTRIN [Concomitant]
     Indication: ANTICOAGULANT THERAPY
     Route: 048
  12. K-DUR 10 [Concomitant]
     Indication: MINERAL SUPPLEMENTATION
     Route: 048
  13. GLIMEPIRIDE [Concomitant]
     Route: 048
  14. NEURONTIN [Concomitant]
     Route: 048
  15. ENALAPRIL MALEATE [Concomitant]
     Route: 048

REACTIONS (4)
  - FAECES HARD [None]
  - FEELING ABNORMAL [None]
  - INSOMNIA [None]
  - TREMOR [None]
